FAERS Safety Report 4711724-0 (Version None)
Quarter: 2005Q2

REPORT INFORMATION
  Report Type: 
  Country: None (occurrence: None)
  Receive Date: 20050629
  Receipt Date: 20050427
  Transmission Date: 20051028
  Serious: No
  Sender: FDA-Public Use
  Company Number: 05P-163-0298576-00

PATIENT
  Age: 79 Year
  Weight: 71.2147 kg

DRUGS (8)
  1. HUMIRA [Suspect]
     Indication: RHEUMATOID ARTHRITIS
     Dosage: 40 MG, 1 IN 2 WK, SUBCUTANEOUS
     Route: 058
     Dates: start: 20050223
  2. TELMISARTAN [Concomitant]
  3. ASPIRIN [Concomitant]
  4. MULTI-VITAMINS [Concomitant]
  5. CALCIUM GLUCONATE [Concomitant]
  6. PROGESTERONE [Concomitant]
  7. MAGNESIUM [Concomitant]
  8. ACETAMINOPHEN [Concomitant]

REACTIONS (10)
  - ABDOMINAL PAIN UPPER [None]
  - ARTHRALGIA [None]
  - BLOOD PRESSURE INCREASED [None]
  - DRUG INEFFECTIVE [None]
  - DRY MOUTH [None]
  - DRY SKIN [None]
  - DYSGEUSIA [None]
  - INJECTION SITE HAEMORRHAGE [None]
  - MUCOSAL INFLAMMATION [None]
  - PRURITUS [None]
